FAERS Safety Report 7437193-8 (Version None)
Quarter: 2011Q2

REPORT INFORMATION
  Report Type: 
  Country: None (occurrence: None)
  Receive Date: 20110426
  Receipt Date: 20091008
  Transmission Date: 20111010
  Serious: Yes (Death, Hospitalization, Other)
  Sender: FDA-Public Use
  Company Number: US-BAYER-200935515NA

PATIENT
  Age: 75 Year
  Sex: Female
  Weight: 80.726 kg

DRUGS (16)
  1. HEPARIN [Concomitant]
     Dosage: 1000UNITS/ML
     Route: 042
     Dates: start: 19960222
  2. PROTAMINE SULFATE [Concomitant]
     Dosage: 900 MG, UNK
     Route: 042
     Dates: start: 19960222, end: 19960222
  3. CARDIOPLEGIA [Concomitant]
     Dosage: 1000 ML, UNK
     Route: 042
     Dates: start: 19960222, end: 19960222
  4. PLASMA [Concomitant]
     Dosage: 1 U, UNK
     Dates: start: 19960221
  5. DESMOPRESSIN ACETATE [Concomitant]
     Dosage: 24 MCG
     Route: 042
     Dates: start: 19960222
  6. HEPARIN [Concomitant]
     Dosage: 1000 UNITS + SODIUM BICARBONATE FOR VEIN IRRIGATION
     Route: 042
     Dates: start: 19960222
  7. PLATELETS [Concomitant]
     Dosage: 10 U, UNK
     Dates: start: 19960221
  8. TRASYLOL [Suspect]
     Indication: CORONARY ARTERY BYPASS
     Dosage: 1ML INITIAL TEST DOSE, 1 MILLION OVER 20 MINUTES FOLLOWED BY 50ML/HR INFUSION
     Route: 042
     Dates: start: 19960222, end: 19960222
  9. FUROSEMIDE [Concomitant]
     Dosage: 40MG/ 4ML
     Route: 042
     Dates: start: 19960222
  10. VANCOMYCIN [Concomitant]
     Dosage: 1 G, UNK
     Route: 042
     Dates: start: 19960222
  11. VERSED [Concomitant]
     Dosage: UNK
  12. RED BLOOD CELLS [Concomitant]
     Dosage: 1 U, UNK
     Dates: start: 19960303
  13. LIDOCAINE [Concomitant]
     Dosage: 100 MG, UNK
     Route: 042
     Dates: start: 19960222
  14. PAPAVERINE [PAPAVERINE] [Concomitant]
     Dosage: 100 ML FOR VEIN IRRIGATION
     Route: 042
     Dates: start: 19960222, end: 19960222
  15. VANCOMYCIN [Concomitant]
     Dosage: 500 MG, UNK
     Route: 042
     Dates: start: 19960222
  16. FENTANYL [Concomitant]

REACTIONS (13)
  - UNEVALUABLE EVENT [None]
  - DEATH [None]
  - MULTI-ORGAN FAILURE [None]
  - RENAL IMPAIRMENT [None]
  - FEAR [None]
  - PAIN [None]
  - RENAL INJURY [None]
  - STRESS [None]
  - ANHEDONIA [None]
  - INJURY [None]
  - RENAL FAILURE [None]
  - EMOTIONAL DISTRESS [None]
  - ANXIETY [None]
